FAERS Safety Report 13175764 (Version 1)
Quarter: 2017Q1

REPORT INFORMATION
  Report Type: Spontaneous
  Country: US (occurrence: US)
  Receive Date: 20170201
  Receipt Date: 20170201
  Transmission Date: 20170428
  Serious: Yes (Other)
  Sender: FDA-Public Use
  Company Number: US-ELI_LILLY_AND_COMPANY-US201607013691

PATIENT
  Sex: Female

DRUGS (2)
  1. CYMBALTA [Suspect]
     Active Substance: DULOXETINE HYDROCHLORIDE
     Dosage: 30 MG, QD
     Route: 048
  2. CYMBALTA [Suspect]
     Active Substance: DULOXETINE HYDROCHLORIDE
     Indication: PRODUCT USED FOR UNKNOWN INDICATION
     Dosage: 60 MG, QD
     Route: 048
     Dates: start: 20061010

REACTIONS (19)
  - Decreased interest [Unknown]
  - Drug withdrawal syndrome [Unknown]
  - Paraesthesia [Unknown]
  - Insomnia [Unknown]
  - Vertigo [Unknown]
  - Disturbance in attention [Unknown]
  - Tinnitus [Unknown]
  - Loss of consciousness [Unknown]
  - Agitation [Unknown]
  - Tremor [Unknown]
  - Depressed mood [Unknown]
  - Feeling abnormal [Unknown]
  - Suicidal ideation [Unknown]
  - Abdominal discomfort [Unknown]
  - Abdominal pain [Unknown]
  - Hyperhidrosis [Unknown]
  - Restlessness [Unknown]
  - Fatigue [Unknown]
  - Dizziness [Unknown]
